FAERS Safety Report 23965812 (Version 1)
Quarter: 2024Q2

REPORT INFORMATION
  Report Type: Spontaneous
  Country: FR (occurrence: FR)
  Receive Date: 20240612
  Receipt Date: 20240612
  Transmission Date: 20240716
  Serious: Yes (Disabling, Other)
  Sender: FDA-Public Use
  Company Number: FR-MLMSERVICE-20240516-PI065271-00246-2

PATIENT
  Age: 25 Year
  Sex: Male
  Weight: 78 kg

DRUGS (2)
  1. OLANZAPINE [Suspect]
     Active Substance: OLANZAPINE
     Indication: Schizophrenia
     Dosage: 5 MILLIGRAM, ONCE A DAY (TRIED REDUCING THE OLANZAPINE DOSAGE TO 5 MG/DAY ON HIS OWN, BUT IT HAD NO
     Route: 048
     Dates: start: 2022, end: 202211
  2. OLANZAPINE [Suspect]
     Active Substance: OLANZAPINE
     Dosage: 20 MILLIGRAM, ONCE A DAY
     Route: 048
     Dates: start: 202210, end: 2022

REACTIONS (2)
  - Type I hypersensitivity [Recovered/Resolved]
  - Urticaria cholinergic [Recovered/Resolved]

NARRATIVE: CASE EVENT DATE: 20221001
